FAERS Safety Report 8831727 (Version 1)
Quarter: 2012Q4

REPORT INFORMATION
  Report Type: 
  Country: CA (occurrence: CA)
  Receive Date: 20121009
  Receipt Date: 20121009
  Transmission Date: 20130627
  Serious: Yes (Other)
  Sender: FDA-Public Use
  Company Number: CA-ROCHE-1138715

PATIENT
  Sex: Female

DRUGS (2)
  1. RITUXAN [Suspect]
     Indication: NON-HODGKIN^S LYMPHOMA
     Route: 065
  2. LAMIVUDINE [Suspect]
     Indication: PRODUCT USED FOR UNKNOWN INDICATION

REACTIONS (6)
  - Tongue discolouration [Unknown]
  - Decreased appetite [Unknown]
  - Oral pain [Unknown]
  - Lip dry [Recovering/Resolving]
  - Hypoaesthesia oral [Not Recovered/Not Resolved]
  - Glossitis [Not Recovered/Not Resolved]
